FAERS Safety Report 5482882-8 (Version None)
Quarter: 2007Q4

REPORT INFORMATION
  Report Type: 
  Country: None (occurrence: None)
  Receive Date: 20071011
  Receipt Date: 20071001
  Transmission Date: 20080405
  Serious: Yes (Other)
  Sender: FDA-Public Use
  Company Number: US-PFIZER INC-2007078526

PATIENT
  Sex: Female
  Weight: 63.1 kg

DRUGS (5)
  1. CHANTIX [Suspect]
     Indication: EX-SMOKER
  2. SYNTHROID [Concomitant]
  3. NEXIUM [Concomitant]
  4. ATENOLOL [Concomitant]
  5. ESTRACE [Concomitant]

REACTIONS (6)
  - ABDOMINAL PAIN UPPER [None]
  - CARDIAC FLUTTER [None]
  - EMOTIONAL DISORDER [None]
  - EXTRASYSTOLES [None]
  - NAUSEA [None]
  - STOMACH DISCOMFORT [None]
